FAERS Safety Report 25322004 (Version 2)
Quarter: 2025Q2

REPORT INFORMATION
  Report Type: Other
  Country: GB (occurrence: GB)
  Receive Date: 20250516
  Receipt Date: 20250519
  Transmission Date: 20250717
  Serious: Yes (Other)
  Sender: GLENMARK
  Company Number: None

PATIENT
  Age: 35 Year
  Sex: Female
  Weight: 80 kg

DRUGS (1)
  1. MONTELUKAST SODIUM [Suspect]
     Active Substance: MONTELUKAST SODIUM
     Indication: Product used for unknown indication
     Route: 065
     Dates: start: 20250502

REACTIONS (13)
  - Pain [Recovering/Resolving]
  - Primary stabbing headache [Recovering/Resolving]
  - Agitation [Recovering/Resolving]
  - Executive dysfunction [Unknown]
  - Electric shock sensation [Unknown]
  - Musculoskeletal stiffness [Unknown]
  - Back pain [Unknown]
  - Tension [Unknown]
  - Sedation [Unknown]
  - Dyspnoea [Unknown]
  - Somnolence [Unknown]
  - Anxiety [Unknown]
  - Paraesthesia [Unknown]

NARRATIVE: CASE EVENT DATE: 20250501
